FAERS Safety Report 8066054-9 (Version None)
Quarter: 2012Q1

REPORT INFORMATION
  Report Type: 
  Country: None (occurrence: None)
  Receive Date: 20120124
  Receipt Date: 20120117
  Transmission Date: 20120608
  Serious: Yes (Other)
  Sender: FDA-Public Use
  Company Number: 2012SP000224

PATIENT
  Age: 10 Month
  Sex: 0

DRUGS (3)
  1. XOPENEX [Suspect]
     Indication: CHEST DISCOMFORT
     Route: 055
  2. BUDESONIDE [Suspect]
     Indication: PRODUCT USED FOR UNKNOWN INDICATION
  3. XOPENEX [Suspect]
     Indication: ASTHMA
     Route: 055

REACTIONS (2)
  - TREMOR [None]
  - CONVULSION [None]
